FAERS Safety Report 8860450 (Version 1)
Quarter: 2012Q4

REPORT INFORMATION
  Report Type: 
  Country: US (occurrence: US)
  Receive Date: 20121025
  Receipt Date: 20121025
  Transmission Date: 20130627
  Serious: No
  Sender: FDA-Public Use
  Company Number: US-009507513-1209USA011628

PATIENT
  Sex: Female

DRUGS (2)
  1. IMPLANON [Suspect]
     Indication: CONTRACEPTION
     Dosage: 68 mg, 3 year implant
     Route: 059
     Dates: start: 20120924
  2. LIDOCAINE [Suspect]
     Dosage: UNK

REACTIONS (2)
  - Implant site swelling [Unknown]
  - Medical device complication [Unknown]
